FAERS Safety Report 4303654-3 (Version None)
Quarter: 2004Q1

REPORT INFORMATION
  Report Type: 
  Country: None (occurrence: None)
  Receive Date: 20040224
  Receipt Date: 20040224
  Transmission Date: 20041129
  Serious: Yes (Other)
  Sender: FDA-Public Use
  Company Number: None

PATIENT
  Age: 30 Year
  Sex: Female
  Weight: 49.4421 kg

DRUGS (1)
  1. TEQUIN [Suspect]
     Indication: BRONCHITIS
     Dosage: 400 MG 2 X DAY ORAL
     Route: 048
     Dates: start: 20031231, end: 20031231

REACTIONS (13)
  - ASTHENIA [None]
  - CHILLS [None]
  - DIARRHOEA [None]
  - DIZZINESS [None]
  - FEELING ABNORMAL [None]
  - FEELING HOT AND COLD [None]
  - HEADACHE [None]
  - HYPERHIDROSIS [None]
  - HYPOVENTILATION [None]
  - LOSS OF CONSCIOUSNESS [None]
  - MEMORY IMPAIRMENT [None]
  - NAUSEA [None]
  - SPEECH DISORDER [None]
